FAERS Safety Report 6344761-3 (Version None)
Quarter: 2009Q3

REPORT INFORMATION
  Report Type: 
  Country: None (occurrence: None)
  Receive Date: 20090904
  Receipt Date: 20090827
  Transmission Date: 20100115
  Serious: Yes (Other)
  Sender: FDA-Public Use
  Company Number: A-US2008-20032

PATIENT
  Age: 65 Year
  Sex: Male
  Weight: 156 kg

DRUGS (13)
  1. TRACLEER [Suspect]
     Indication: PULMONARY ARTERIAL HYPERTENSION
     Dosage: 125 MG, BID, ORAL; 62.5 MG, BID, ORAL
     Route: 048
     Dates: start: 20071201, end: 20080401
  2. TRACLEER [Suspect]
     Indication: PULMONARY ARTERIAL HYPERTENSION
     Dosage: 125 MG, BID, ORAL; 62.5 MG, BID, ORAL
     Route: 048
     Dates: start: 20080401
  3. REVATIO [Concomitant]
  4. FINASTERIDE [Concomitant]
  5. UROXATRAL [Concomitant]
  6. ALTACE [Concomitant]
  7. GLIPIZIDE [Concomitant]
  8. SPIRONOLACTONE [Concomitant]
  9. DEMADEX [Concomitant]
  10. FUROSEMIDE [Concomitant]
  11. WARFARIN SODIUM [Concomitant]
  12. KLOR-CON [Concomitant]
  13. INSULIN (INSULIN) [Concomitant]

REACTIONS (2)
  - HEADACHE [None]
  - OBESITY SURGERY [None]
